FAERS Safety Report 9173437 (Version 1)
Quarter: 2013Q1

REPORT INFORMATION
  Report Type: Spontaneous
  Country: US (occurrence: None)
  Receive Date: 20130318
  Receipt Date: 20130318
  Transmission Date: 20140127
  Serious: Yes (Other)
  Sender: FDA-Public Use
  Company Number: COR_00001_2013

PATIENT
  Age: 80 Year
  Sex: Male

DRUGS (5)
  1. ETOPOSIDE [Suspect]
     Indication: B-CELL LYMPHOMA RECURRENT
     Dosage: (DF [7 CYCLES OF RICE])
  2. ETOPOSIDE [Suspect]
     Indication: OFF LABEL USE
     Dosage: (DF [7 CYCLES OF RICE])
  3. CARBOPLATIN [Suspect]
     Dosage: (DF [7 CYCLES OF RICE])
  4. RITUXAN [Suspect]
     Indication: B-CELL LYMPHOMA RECURRENT
     Dosage: (DF [7 CYCLES OF RICE])
  5. IFOSFAMIDE [Suspect]
     Indication: B-CELL LYMPHOMA RECURRENT
     Dosage: (DF [7 CYCLES OF RICE])

REACTIONS (2)
  - Bone marrow failure [None]
  - Blast cell count increased [None]
